FAERS Safety Report 24053217 (Version 1)
Quarter: 2024Q3

REPORT INFORMATION
  Report Type: Spontaneous
  Country: FR (occurrence: FR)
  Receive Date: 20240705
  Receipt Date: 20240705
  Transmission Date: 20241017
  Serious: Yes (Hospitalization)
  Sender: TEVA
  Company Number: None

PATIENT
  Age: 55 Year
  Sex: Female

DRUGS (8)
  1. DIAZEPAM [Suspect]
     Active Substance: DIAZEPAM
     Indication: Product used for unknown indication
     Dosage: SOMETIMES UP TO 300 MG/DAY
     Route: 048
  2. HEROIN [Suspect]
     Active Substance: DIAMORPHINE
     Indication: Product used for unknown indication
     Dosage: CURRENTLY OCCASIONAL IN THE FORM OF SPEEDBALL
     Route: 065
     Dates: start: 1981
  3. COCAINE [Suspect]
     Active Substance: COCAINE
     Indication: Product used for unknown indication
     Dosage: BETWEEN 3 AND 5G/D
     Route: 065
     Dates: start: 2022
  4. COCAINE [Suspect]
     Active Substance: COCAINE
     Indication: Product used for unknown indication
     Dosage: OCCASIONAL
     Route: 042
     Dates: start: 1987, end: 2022
  5. COCAINE [Suspect]
     Active Substance: COCAINE
     Indication: Product used for unknown indication
     Dosage: OCCASIONAL
     Route: 045
     Dates: start: 1987, end: 2022
  6. PRAZEPAM [Suspect]
     Active Substance: PRAZEPAM
     Indication: Product used for unknown indication
     Dosage: SOMETIMES UP TO 50 TO 60 MG/D
     Route: 048
  7. CANNABIS SATIVA SUBSP. INDICA TOP [Suspect]
     Active Substance: CANNABIS SATIVA SUBSP. INDICA TOP
     Indication: Product used for unknown indication
     Dosage: 10 JOINTS/DAY
     Route: 065
     Dates: start: 1981
  8. ALCOHOL [Suspect]
     Active Substance: ALCOHOL
     Indication: Product used for unknown indication
     Dosage: 2 TO 3 TIMES A WEEK, 7U/D DRINK
     Route: 048
     Dates: start: 1981

REACTIONS (2)
  - Withdrawal syndrome [Recovered/Resolved]
  - Drug abuse [Recovering/Resolving]

NARRATIVE: CASE EVENT DATE: 19810101
